FAERS Safety Report 11980682 (Version 2)
Quarter: 2016Q1

REPORT INFORMATION
  Report Type: Spontaneous
  Country: US (occurrence: US)
  Receive Date: 20160129
  Receipt Date: 20160315
  Transmission Date: 20160526
  Serious: Yes (Hospitalization, Other)
  Sender: FDA-Public Use
  Company Number: US-APOTEX-2016AP006029

PATIENT
  Age: 75 Year
  Sex: Female

DRUGS (9)
  1. COZAAR [Suspect]
     Active Substance: LOSARTAN POTASSIUM
     Indication: CARDIOVASCULAR DISORDER
     Dosage: 25 MG, QD
     Route: 065
  2. LIPITOR [Suspect]
     Active Substance: ATORVASTATIN CALCIUM
     Indication: CARDIOVASCULAR DISORDER
     Dosage: 20 MG, QD
     Route: 065
  3. PLAVIX [Suspect]
     Active Substance: CLOPIDOGREL BISULFATE
     Indication: CARDIAC DISORDER
     Dosage: 75 MG, QD
     Route: 065
  4. TYVASO [Suspect]
     Active Substance: TREPROSTINIL
     Indication: CARDIAC DISORDER
     Dosage: 12 SNIFFS
     Route: 065
  5. PROTONIX [Suspect]
     Active Substance: PANTOPRAZOLE SODIUM
     Indication: CARDIOVASCULAR DISORDER
     Dosage: 40 MG, QD
     Route: 065
  6. TRAZODONE HYDROCHLORIDE. [Suspect]
     Active Substance: TRAZODONE HYDROCHLORIDE
     Indication: CARDIOVASCULAR DISORDER
     Dosage: 150 MG ONE NIGHTLY
     Route: 065
  7. FUROSEMIDE. [Suspect]
     Active Substance: FUROSEMIDE
     Indication: CARDIOVASCULAR DISORDER
     Dosage: 80 MG ONE AND HALF DAILY
     Route: 065
  8. REVATIO [Suspect]
     Active Substance: SILDENAFIL CITRATE
     Indication: CARDIOVASCULAR DISORDER
     Dosage: 20 MG, TID
     Route: 065
     Dates: start: 2013
  9. NORCO [Suspect]
     Active Substance: ACETAMINOPHEN\HYDROCODONE BITARTRATE
     Indication: CARDIOVASCULAR DISORDER
     Dosage: 7.5-325 MG EVERY 6 HOURS
     Route: 065

REACTIONS (5)
  - Fall [Unknown]
  - Ankle fracture [Not Recovered/Not Resolved]
  - Syncope [Unknown]
  - Off label use [Unknown]
  - Lower limb fracture [Unknown]

NARRATIVE: CASE EVENT DATE: 20150310
